FAERS Safety Report 9668781 (Version 1)
Quarter: 2013Q4

REPORT INFORMATION
  Report Type: Spontaneous
  Country: US (occurrence: US)
  Receive Date: 20131105
  Receipt Date: 20131105
  Transmission Date: 20140711
  Serious: No
  Sender: FDA-Public Use
  Company Number: US-JNJFOC-20131015843

PATIENT
  Sex: Male
  Weight: 78.93 kg

DRUGS (11)
  1. DURAGESIC [Suspect]
     Indication: DIABETIC NEUROPATHY
     Route: 062
     Dates: start: 2013
  2. DURAGESIC [Suspect]
     Indication: DIABETIC NEUROPATHY
     Dosage: 12.5 UG/HR PATCH X 3
     Route: 062
     Dates: start: 2013, end: 2013
  3. DURAGESIC [Suspect]
     Indication: DIABETIC NEUROPATHY
     Dosage: 12.5 UG/HR PATCH X 2
     Route: 062
     Dates: start: 2013, end: 2013
  4. DURAGESIC [Suspect]
     Indication: DIABETIC NEUROPATHY
     Route: 062
     Dates: start: 2013, end: 2013
  5. METFORMIN [Concomitant]
     Indication: BLOOD GLUCOSE ABNORMAL
     Route: 048
  6. LANTUS [Concomitant]
     Indication: BLOOD GLUCOSE ABNORMAL
     Route: 058
     Dates: start: 2012
  7. HYDROCHLOROTHIAZIDE [Concomitant]
     Indication: DIURETIC THERAPY
     Route: 048
  8. LINAGLIPTIN [Concomitant]
     Indication: BLOOD GLUCOSE ABNORMAL
     Route: 048
  9. LOVAZA [Concomitant]
     Indication: BLOOD CHOLESTEROL
     Route: 048
  10. VITAMINS NOS [Concomitant]
     Indication: PRODUCT USED FOR UNKNOWN INDICATION
     Route: 065
  11. VITAMIN B COMPLEX [Concomitant]
     Indication: PRODUCT USED FOR UNKNOWN INDICATION
     Route: 065

REACTIONS (6)
  - Product quality issue [Recovered/Resolved]
  - Drug prescribing error [Unknown]
  - Product quality issue [Unknown]
  - Hyperhidrosis [Recovered/Resolved]
  - Pain [Recovered/Resolved]
  - Wrong technique in drug usage process [Not Recovered/Not Resolved]
